FAERS Safety Report 8129730-5 (Version None)
Quarter: 2012Q1

REPORT INFORMATION
  Report Type: 
  Country: None (occurrence: None)
  Receive Date: 20120210
  Receipt Date: 20120131
  Transmission Date: 20120608
  Serious: Yes (Other)
  Sender: FDA-Public Use
  Company Number: FR-CUBIST-2012S1000126

PATIENT
  Age: 88 Year
  Sex: Male

DRUGS (7)
  1. FOLIC ACID [Concomitant]
     Indication: PRODUCT USED FOR UNKNOWN INDICATION
     Dosage: DOSE UNIT:U UNKNOWN
     Route: 065
  2. CALCIPARINE [Concomitant]
     Indication: PRODUCT USED FOR UNKNOWN INDICATION
     Dosage: DOSE UNIT:U UNKNOWN
     Route: 065
  3. IRBESARTAN [Concomitant]
     Indication: HYPERTENSION
     Dosage: DOSE UNIT:U UNKNOWN
     Route: 065
  4. LOXEN [Concomitant]
     Indication: HYPERTENSION
     Dosage: DOSE UNIT:U UNKNOWN
     Route: 065
  5. CUBICIN [Suspect]
     Indication: INTERVERTEBRAL DISCITIS
     Route: 042
  6. ACETAMINOPHEN [Concomitant]
     Indication: PRODUCT USED FOR UNKNOWN INDICATION
     Dosage: DOSE UNIT:U UNKNOWN
     Route: 065
  7. ZOLPIDEM [Concomitant]
     Indication: PRODUCT USED FOR UNKNOWN INDICATION
     Dosage: DOSE UNIT:U UNKNOWN
     Route: 065

REACTIONS (3)
  - BLOOD CREATINE PHOSPHOKINASE INCREASED [None]
  - LUNG INFECTION [None]
  - HYPONATRAEMIA [None]
